FAERS Safety Report 13493952 (Version 1)
Quarter: 2017Q2

REPORT INFORMATION
  Report Type: Spontaneous
  Country: JP (occurrence: JP)
  Receive Date: 20170427
  Receipt Date: 20170427
  Transmission Date: 20170830
  Serious: Yes (Other)
  Sender: FDA-Public Use
  Company Number: JP-MYLANLABS-2017M1026119

PATIENT

DRUGS (3)
  1. PREDNISOLONE. [Suspect]
     Active Substance: PREDNISOLONE
     Dosage: 5-10 MG/DAY
     Route: 065
  2. AZACITIDINE. [Concomitant]
     Active Substance: AZACITIDINE
     Indication: GRAFT VERSUS HOST DISEASE
     Dosage: 75 MG/ME2/D FOR 5 DAYS IN FIRST CYCLE AND 7 DAYS MONTHLY IN THE SUBSEQUENT CYCLES
     Route: 065
  3. PREDNISOLONE. [Suspect]
     Active Substance: PREDNISOLONE
     Indication: GRAFT VERSUS HOST DISEASE
     Dosage: 0.5MG/KG; TAPERED OFF AFTER 1MONTH, BUT RESTARTED AT 5-10MG/DAY
     Route: 065

REACTIONS (1)
  - Myelodysplastic syndrome [Unknown]
